FAERS Safety Report 15450965 (Version 1)
Quarter: 2018Q3

REPORT INFORMATION
  Report Type: Spontaneous
  Country: US (occurrence: US)
  Receive Date: 20180926
  Receipt Date: 20180926
  Transmission Date: 20181010
  Serious: No
  Sender: FDA-Public Use
  Company Number: None

PATIENT
  Age: 62 Year
  Sex: Male

DRUGS (1)
  1. ZOLEDRONIC INJ 5/100ML [Suspect]
     Active Substance: ZOLEDRONIC ACID
     Indication: OSTEITIS DEFORMANS
     Route: 042
     Dates: start: 201809

REACTIONS (2)
  - Pyrexia [None]
  - Pain [None]

NARRATIVE: CASE EVENT DATE: 20180917
